FAERS Safety Report 7574089-5 (Version None)
Quarter: 2011Q2

REPORT INFORMATION
  Report Type: 
  Country: None (occurrence: None)
  Receive Date: 20110627
  Receipt Date: 20110509
  Transmission Date: 20111010
  Serious: No
  Sender: FDA-Public Use
  Company Number: US-BAYER-2011-041496

PATIENT
  Age: 74 Year
  Sex: Female
  Weight: 79 kg

DRUGS (3)
  1. LISINOPRIL [Concomitant]
  2. ALEVE (CAPLET) [Suspect]
     Indication: ANALGESIC THERAPY
     Dosage: 1 DF, ONCE
     Route: 048
     Dates: start: 20110508, end: 20110508
  3. MULTIVITAMIN PREPARATION + MINERAL SUPPLEMENT [Concomitant]

REACTIONS (3)
  - PRURITUS GENERALISED [None]
  - COUGH [None]
  - GENERALISED ERYTHEMA [None]
